FAERS Safety Report 25073474 (Version 1)
Quarter: 2025Q1

REPORT INFORMATION
  Report Type: Other
  Country: GB (occurrence: GB)
  Receive Date: 20250313
  Receipt Date: 20250313
  Transmission Date: 20250408
  Serious: Yes (Other)
  Sender: MACLEODS
  Company Number: None

PATIENT

DRUGS (3)
  1. SILDENAFIL [Suspect]
     Active Substance: SILDENAFIL
     Indication: Pulmonary arterial hypertension
     Dosage: 100MG - THREE TIMES DAILY
     Route: 065
     Dates: start: 20200201
  2. AMBRISENTAN [Concomitant]
     Active Substance: AMBRISENTAN
     Indication: Product used for unknown indication
  3. UPTRAVI [Concomitant]
     Active Substance: SELEXIPAG
     Indication: Product used for unknown indication

REACTIONS (5)
  - Blood pressure measurement [Unknown]
  - Anxiety [Unknown]
  - Feeling jittery [Unknown]
  - Nervousness [Unknown]
  - Nervousness [Unknown]

NARRATIVE: CASE EVENT DATE: 20250304
